FAERS Safety Report 12994626 (Version 2)
Quarter: 2016Q4

REPORT INFORMATION
  Report Type: Spontaneous
  Country: CN (occurrence: CN)
  Receive Date: 20161202
  Receipt Date: 20161212
  Transmission Date: 20170207
  Serious: Yes (Other)
  Sender: FDA-Public Use
  Company Number: PHHY2016CN165310

PATIENT
  Sex: Male

DRUGS (3)
  1. TEGRETOL [Suspect]
     Active Substance: CARBAMAZEPINE
     Dosage: 300 MG, AT 9 AM (200 MG 1 AND HALF TABLET)
     Route: 048
     Dates: start: 20161128
  2. TEGRETOL [Suspect]
     Active Substance: CARBAMAZEPINE
     Dosage: 200 MG IN MORNING, 200 MG IN AFTERNOON AND 300 MG IN EVENING
     Route: 048
  3. TEGRETOL [Suspect]
     Active Substance: CARBAMAZEPINE
     Indication: EPILEPSY
     Dosage: 200 MG IN MORNING, 200 MG IN AFTERNOON AND 300 MG IN EVENING
     Route: 048

REACTIONS (3)
  - Epilepsy [Unknown]
  - Diplopia [Recovered/Resolved]
  - Accommodation disorder [Recovered/Resolved]

NARRATIVE: CASE EVENT DATE: 20161128
